FAERS Safety Report 5375981-2 (Version None)
Quarter: 2007Q3

REPORT INFORMATION
  Report Type: 
  Country: None (occurrence: None)
  Receive Date: 20070702
  Receipt Date: 20070621
  Transmission Date: 20080115
  Serious: Yes (Other)
  Sender: FDA-Public Use
  Company Number: US-JNJFOC-20070605169

PATIENT
  Sex: Male

DRUGS (7)
  1. REMICADE [Suspect]
     Route: 042
  2. REMICADE [Suspect]
     Route: 042
  3. REMICADE [Suspect]
     Indication: PSORIASIS
     Route: 042
  4. ALEVE [Suspect]
     Indication: DRUG USE FOR UNKNOWN INDICATION
  5. BENEDRYL [Concomitant]
     Indication: PREMEDICATION
  6. SOLU-CORTEF [Concomitant]
     Indication: PREMEDICATION
  7. TYLENOL [Concomitant]
     Indication: PREMEDICATION

REACTIONS (3)
  - CHOKING SENSATION [None]
  - INFUSION RELATED REACTION [None]
  - URTICARIA [None]
